FAERS Safety Report 18422432 (Version 1)
Quarter: 2020Q4

REPORT INFORMATION
  Report Type: Spontaneous
  Country: ES (occurrence: ES)
  Receive Date: 20201023
  Receipt Date: 20201023
  Transmission Date: 20210114
  Serious: Yes (Hospitalization)
  Sender: FDA-Public Use
  Company Number: NVSC2020ES282521

PATIENT
  Age: 75 Year
  Sex: Female

DRUGS (8)
  1. PREGABALINA [Concomitant]
     Active Substance: PREGABALIN
     Indication: TENDON RUPTURE
     Dosage: UNK ( 75 MG 56 CAPSULAS)
     Route: 048
     Dates: start: 20200408
  2. SINTROM [Concomitant]
     Active Substance: ACENOCOUMAROL
     Indication: THROMBOSIS
     Dosage: 2 MG, Q24H ( 4 MG COMPRIMIDOS, 20 COMPRIMIDOS)
     Route: 048
     Dates: start: 20200406
  3. AMLODIPINE;HYDROCHLOROTHIAZIDE;OLMESARTAN [Concomitant]
     Active Substance: AMLODIPINE\HYDROCHLOROTHIAZIDE\OLMESARTAN
     Indication: ESSENTIAL HYPERTENSION
     Dosage: 1 DF, Q24H (40 MG/5 MG/25 MG 28 COMPRIMIDOS)
     Route: 048
     Dates: start: 20200409
  4. BACLOFENO [Concomitant]
     Indication: ATRIAL FIBRILLATION
     Dosage: 10 MG, Q8H (10 MG 30 COMPRIMIDOS)
     Route: 048
     Dates: start: 20200408
  5. METFORMIN [Suspect]
     Active Substance: METFORMIN HYDROCHLORIDE
     Indication: TYPE 2 DIABETES MELLITUS
     Dosage: 850 MG, Q12H (850 MG, 50 COMPRIMIDOS)
     Route: 048
     Dates: start: 20200423, end: 20201006
  6. PARACETAMOL [Concomitant]
     Active Substance: ACETAMINOPHEN
     Indication: TENDON RUPTURE
     Dosage: 1 G, Q8H (1.000 MG 40 COMPRIMIDOS)
     Route: 048
     Dates: start: 20200423
  7. OMEPRAZOL [Concomitant]
     Active Substance: OMEPRAZOLE
     Indication: THROMBOSIS
     Dosage: 20 MG, Q24H ( 20 MG 56 CAPSULAS)
     Route: 048
     Dates: start: 20200807
  8. AMIODARONA [Concomitant]
     Active Substance: AMIODARONE
     Indication: ATRIAL FIBRILLATION
     Dosage: 200 MG, Q24H ( 200 MG COMPRIMIDOS EFG, 30 COMPRIMIDOS)
     Route: 048
     Dates: start: 20200409

REACTIONS (1)
  - Metabolic acidosis [Recovering/Resolving]

NARRATIVE: CASE EVENT DATE: 20201006
